FAERS Safety Report 10806785 (Version 1)
Quarter: 2015Q1

REPORT INFORMATION
  Report Type: Report from Study
  Country: US (occurrence: US)
  Receive Date: 20150217
  Receipt Date: 20150217
  Transmission Date: 20150721
  Serious: No
  Sender: FDA-Public Use
  Company Number: US-ABBVIE-14K-163-1258551-00

PATIENT
  Age: 38 Year
  Sex: Female

DRUGS (6)
  1. HUMIRA [Suspect]
     Active Substance: ADALIMUMAB
     Indication: ANKYLOSING SPONDYLITIS
     Route: 065
     Dates: start: 20140620
  2. ESTRADIOL. [Concomitant]
     Active Substance: ESTRADIOL
     Indication: HORMONE REPLACEMENT THERAPY
     Dosage: AT BEDTIME
  3. KLONOPIN [Concomitant]
     Active Substance: CLONAZEPAM
     Indication: FEELING OF RELAXATION
     Dosage: AT BEDTIME
  4. CETRIZINE [Concomitant]
     Active Substance: CETIRIZINE HYDROCHLORIDE
     Indication: HYPERSENSITIVITY
     Dosage: DAILY
  5. ENTOCORT [Concomitant]
     Active Substance: BUDESONIDE
     Indication: CROHN^S DISEASE
  6. HUMIRA [Suspect]
     Active Substance: ADALIMUMAB
     Indication: CROHN^S DISEASE

REACTIONS (12)
  - Fatigue [Recovering/Resolving]
  - Nausea [Recovering/Resolving]
  - Acute stress disorder [Unknown]
  - Insomnia [Unknown]
  - Pain in jaw [Recovered/Resolved]
  - Restlessness [Unknown]
  - Palpitations [Recovered/Resolved]
  - Vomiting [Recovered/Resolved]
  - Rash erythematous [Recovered/Resolved]
  - Headache [Recovered/Resolved]
  - Rash vesicular [Recovered/Resolved]
  - Formication [Unknown]

NARRATIVE: CASE EVENT DATE: 2014
